FAERS Safety Report 4926167-4 (Version None)
Quarter: 2006Q1

REPORT INFORMATION
  Report Type: 
  Country: None (occurrence: None)
  Receive Date: 20060228
  Receipt Date: 20050901
  Transmission Date: 20060701
  Serious: Yes (Other)
  Sender: FDA-Public Use
  Company Number: US-GLAXOSMITHKLINE-A0572746A

PATIENT
  Age: 32 Year
  Sex: Male

DRUGS (6)
  1. LAMICTAL [Suspect]
     Indication: BIPOLAR DISORDER
     Dosage: 200MG PER DAY
     Route: 048
     Dates: start: 20040901
  2. ZOLOFT [Concomitant]
  3. ZYRTEC [Concomitant]
  4. NASONEX [Concomitant]
  5. ATARAX [Concomitant]
  6. BENADRYL [Concomitant]

REACTIONS (1)
  - RASH [None]
